FAERS Safety Report 9167846 (Version 3)
Quarter: 2013Q2

REPORT INFORMATION
  Report Type: Spontaneous
  Country: FR (occurrence: FR)
  Receive Date: 20130318
  Receipt Date: 20130607
  Transmission Date: 20140414
  Serious: Yes (Death, Hospitalization)
  Sender: FDA-Public Use
  Company Number: FR-SANOFI-AVENTIS-2013SA026127

PATIENT
  Age: 70 Year
  Sex: Male
  Weight: 80 kg

DRUGS (3)
  1. JEVTANA [Suspect]
     Indication: PROSTATE CANCER METASTATIC
     Route: 042
     Dates: start: 20130301, end: 20130301
  2. NEULASTA [Concomitant]
     Indication: PROPHYLAXIS
     Route: 058
     Dates: start: 20130302, end: 20130302
  3. TAXOTERE [Concomitant]
     Dosage: 3 COURSES OF CHEMOTHERAPY

REACTIONS (9)
  - Thrombocytopenia [Fatal]
  - Bone marrow failure [Fatal]
  - Respiratory distress [Fatal]
  - Hypoxia [Fatal]
  - Respiratory arrest [Fatal]
  - Pneumonia [Fatal]
  - Febrile neutropenia [Fatal]
  - General physical health deterioration [Unknown]
  - Diarrhoea [Recovered/Resolved]
